FAERS Safety Report 19560626 (Version 2)
Quarter: 2021Q3

REPORT INFORMATION
  Report Type: Spontaneous
  Country: US (occurrence: US)
  Receive Date: 20210715
  Receipt Date: 20210728
  Transmission Date: 20211014
  Serious: No
  Sender: FDA-Public Use
  Company Number: US-TAKEDA-2021TUS042805

PATIENT
  Age: 74 Year
  Sex: Female
  Weight: 51 kg

DRUGS (5)
  1. FOSRENOL [Suspect]
     Active Substance: LANTHANUM CARBONATE
     Indication: END STAGE RENAL DISEASE
     Dosage: 6000 MILLIGRAM, QD
     Route: 065
  2. FOSRENOL [Suspect]
     Active Substance: LANTHANUM CARBONATE
     Dosage: 9000 MILLIGRAM, TID
     Route: 065
     Dates: start: 202009
  3. FOSRENOL [Suspect]
     Active Substance: LANTHANUM CARBONATE
     Dosage: 1000 MILLIGRAM
     Route: 048
  4. NEPHRO VITE RX [Concomitant]
     Active Substance: ASCORBIC ACID\BIOTIN\CALCIUM PANTOTHENATE\CYANOCOBALAMIN\FOLIC ACID\NIACINAMIDE\PYRIDOXINE HYDROCHLORIDE\RIBOFLAVIN\THIAMINE MONONITRATE
     Indication: PRODUCT USED FOR UNKNOWN INDICATION
  5. FOSRENOL [Suspect]
     Active Substance: LANTHANUM CARBONATE
     Dosage: 9000 MILLIGRAM, TID
     Route: 065
     Dates: start: 202009

REACTIONS (3)
  - Drug ineffective [Unknown]
  - Blood phosphorus increased [Unknown]
  - Off label use [Unknown]
